FAERS Safety Report 20408850 (Version 3)
Quarter: 2022Q4

REPORT INFORMATION
  Report Type: Spontaneous
  Country: CA (occurrence: CA)
  Receive Date: 20220201
  Receipt Date: 20221017
  Transmission Date: 20230112
  Serious: Yes (Hospitalization, Other)
  Sender: FDA-Public Use
  Company Number: CA-AUROBINDO-AUR-APL-2022-002366

PATIENT
  Age: 56 Year
  Sex: Female
  Weight: 58 kg

DRUGS (14)
  1. DARUNAVIR [Suspect]
     Active Substance: DARUNAVIR
     Indication: HIV infection
     Dosage: 600 MILLIGRAM(1 EVERY .5 DAYS)
     Route: 065
     Dates: start: 20210405
  2. RITONAVIR [Interacting]
     Active Substance: RITONAVIR
     Indication: HIV infection
     Dosage: 100.0 MILLIGRAM(1 EVERY .5 DAYS)
     Route: 065
     Dates: start: 20210405
  3. ABACAVIR [Suspect]
     Active Substance: ABACAVIR
     Indication: HIV infection
     Dosage: 600 MILLIGRAM, ONCE A DAY
     Route: 065
     Dates: start: 20210405
  4. DOLUTEGRAVIR [Suspect]
     Active Substance: DOLUTEGRAVIR
     Indication: HIV infection
     Dosage: 50 MILLIGRAM, ONCE A DAY ((1 EVERY .5 DAYS)
     Route: 065
     Dates: start: 20210405
  5. TACROLIMUS [Interacting]
     Active Substance: TACROLIMUS
     Indication: Renal transplant
     Dosage: 9.0 MILLIGRAM
     Route: 065
  6. TACROLIMUS [Interacting]
     Active Substance: TACROLIMUS
     Indication: Immunosuppressant drug level increased
     Dosage: 1 MILLIGRAM, ONCE A DAY
     Route: 065
     Dates: start: 20210403, end: 20210404
  7. TACROLIMUS [Interacting]
     Active Substance: TACROLIMUS
     Dosage: 0.5 MILLIGRAM, ONCE A DAY
     Route: 065
     Dates: start: 20210407
  8. AMLODIPINE [Concomitant]
     Active Substance: AMLODIPINE BESYLATE
     Indication: Renal transplant
     Dosage: UNK
     Route: 065
     Dates: start: 202103
  9. FERROUS FUMARATE [Concomitant]
     Active Substance: FERROUS FUMARATE
     Indication: Renal transplant
     Dosage: UNK
     Route: 065
     Dates: start: 202103
  10. MYCOPHENOLATE MOFETIL [Concomitant]
     Active Substance: MYCOPHENOLATE MOFETIL
     Indication: Renal transplant
     Dosage: UNK
     Route: 065
  11. MYCOPHENOLIC ACID [Concomitant]
     Active Substance: MYCOPHENOLIC ACID
     Indication: Immunosuppressant drug therapy
     Dosage: UNK
     Route: 065
     Dates: start: 202103
  12. PANTOPRAZOLE [Concomitant]
     Active Substance: PANTOPRAZOLE
     Indication: Renal transplant
     Dosage: UNK
     Route: 065
     Dates: start: 202103
  13. PREDNISONE [Concomitant]
     Active Substance: PREDNISONE
     Indication: Immunosuppressant drug level increased
     Dosage: UNK
     Route: 065
     Dates: start: 202103
  14. SULFAMETHOXAZOLE\TRIMETHOPRIM [Concomitant]
     Active Substance: SULFAMETHOXAZOLE\TRIMETHOPRIM
     Indication: Renal transplant
     Dosage: UNK
     Route: 065
     Dates: start: 202103

REACTIONS (6)
  - Drug interaction [Recovered/Resolved]
  - New onset diabetes after transplantation [Not Recovered/Not Resolved]
  - Nephropathy toxic [Recovered/Resolved]
  - Immunosuppressant drug level increased [Recovered/Resolved]
  - Diabetes mellitus [Recovered/Resolved]
  - Toxicity to various agents [Recovered/Resolved]

NARRATIVE: CASE EVENT DATE: 20210101
